FAERS Safety Report 20805104 (Version 9)
Quarter: 2024Q2

REPORT INFORMATION
  Report Type: Spontaneous
  Country: JP (occurrence: JP)
  Receive Date: 20220509
  Receipt Date: 20240621
  Transmission Date: 20240716
  Serious: Yes (Hospitalization, Other)
  Sender: FDA-Public Use
  Company Number: JP-SA-2021SA411885

PATIENT

DRUGS (29)
  1. SABRIL [Suspect]
     Active Substance: VIGABATRIN
     Indication: Infantile spasms
     Dosage: 35.7 MG/KG/DAY
     Route: 048
     Dates: start: 20210612, end: 20210614
  2. SABRIL [Suspect]
     Active Substance: VIGABATRIN
     Dosage: 71.4 MG/KG/DAY
     Route: 048
     Dates: start: 20210615, end: 20210617
  3. SABRIL [Suspect]
     Active Substance: VIGABATRIN
     Dosage: 107.1 MG/KG/DAY
     Route: 048
     Dates: start: 20210618, end: 20210628
  4. SABRIL [Suspect]
     Active Substance: VIGABATRIN
     Dosage: 142.9 MG/KG/DAY
     Route: 048
     Dates: start: 20210629, end: 20210702
  5. SABRIL [Suspect]
     Active Substance: VIGABATRIN
     Dosage: 71.4 MG/KG/DAY
     Route: 048
     Dates: start: 20210703, end: 20210705
  6. SABRIL [Suspect]
     Active Substance: VIGABATRIN
     Dosage: 35.7 MG/KG/DAY
     Route: 048
     Dates: start: 20210706, end: 20210707
  7. SABRIL [Suspect]
     Active Substance: VIGABATRIN
     Dosage: 107 MG/KG/DAY
     Route: 048
     Dates: start: 20210616, end: 202106
  8. VALPROATE SODIUM [Concomitant]
     Active Substance: VALPROATE SODIUM
     Dosage: 100 MG
     Route: 048
     Dates: start: 20210531, end: 20210603
  9. VALPROATE SODIUM [Concomitant]
     Active Substance: VALPROATE SODIUM
     Dosage: 200 MG
     Route: 048
     Dates: start: 20210604, end: 20210606
  10. VALPROATE SODIUM [Concomitant]
     Active Substance: VALPROATE SODIUM
     Dosage: 300 MG
     Route: 048
     Dates: start: 20210607, end: 20210709
  11. VALPROATE SODIUM [Concomitant]
     Active Substance: VALPROATE SODIUM
     Dosage: 375 MG
     Route: 048
     Dates: start: 20210710
  12. VALPROATE SODIUM [Concomitant]
     Active Substance: VALPROATE SODIUM
     Indication: Infantile spasms
  13. VITAMIN B6 [Concomitant]
     Active Substance: PYRIDOXINE HYDROCHLORIDE
     Dosage: 100 MG
     Route: 048
     Dates: start: 20210531, end: 20210603
  14. VITAMIN B6 [Concomitant]
     Active Substance: PYRIDOXINE HYDROCHLORIDE
     Dosage: 200 MG
     Route: 048
     Dates: start: 20210604, end: 20210606
  15. VITAMIN B6 [Concomitant]
     Active Substance: PYRIDOXINE HYDROCHLORIDE
     Dosage: 300 MG
     Route: 048
     Dates: start: 20210607
  16. VITAMIN B6 [Concomitant]
     Active Substance: PYRIDOXINE HYDROCHLORIDE
     Indication: Infantile spasms
  17. LEVOTHYROXINE SODIUM [Concomitant]
     Active Substance: LEVOTHYROXINE SODIUM
     Dosage: 20 UG
     Route: 048
     Dates: start: 20210407
  18. LEVOTHYROXINE SODIUM [Concomitant]
     Active Substance: LEVOTHYROXINE SODIUM
     Indication: Product used for unknown indication
  19. MUCOSOLVAN DS [Concomitant]
     Indication: Pneumonia aspiration
     Dosage: 6 MG
     Route: 048
     Dates: start: 20210531, end: 20210606
  20. MUCOSOLVAN DS [Concomitant]
     Indication: Bronchitis
     Dosage: 2 ML
     Route: 048
     Dates: start: 20210614, end: 20210716
  21. TULOBUTEROL [Concomitant]
     Active Substance: TULOBUTEROL
     Indication: Pneumonia aspiration
     Dosage: 0.5 MG
     Route: 062
     Dates: start: 20210531, end: 20210606
  22. TULOBUTEROL [Concomitant]
     Active Substance: TULOBUTEROL
     Indication: Bronchitis
     Dosage: 0.5 MG
     Route: 062
     Dates: start: 20210614, end: 20210716
  23. TRICLOFOS SODIUM [Concomitant]
     Active Substance: TRICLOFOS SODIUM
     Indication: Prophylaxis
     Dosage: 5 ML
     Route: 048
     Dates: start: 20210615, end: 20210615
  24. TRICLOFOS SODIUM [Concomitant]
     Active Substance: TRICLOFOS SODIUM
     Dosage: 5 ML
     Route: 048
     Dates: start: 20210617, end: 20210617
  25. CARBOCYSTEINE [Concomitant]
     Active Substance: CARBOCYSTEINE
     Indication: Pneumonia aspiration
     Dosage: 210 MG
     Route: 048
     Dates: start: 20210614, end: 20210716
  26. PRANLUKAST [Concomitant]
     Active Substance: PRANLUKAST
     Indication: Pneumonia aspiration
     Dosage: 50 MG
     Route: 048
     Dates: start: 20210622, end: 20210716
  27. PULMICORT TURBUHALER [Concomitant]
     Active Substance: BUDESONIDE
     Indication: Pneumonia aspiration
     Dosage: 0.5 MG
     Route: 055
     Dates: start: 20210625, end: 20210716
  28. AZITHROMYCIN DIHYDRATE [Concomitant]
     Active Substance: AZITHROMYCIN DIHYDRATE
     Indication: Adverse event
     Dosage: 70 MG
     Route: 048
     Dates: start: 20210629, end: 20210701
  29. AZITHROMYCIN DIHYDRATE [Concomitant]
     Active Substance: AZITHROMYCIN DIHYDRATE
     Indication: Prophylaxis

REACTIONS (4)
  - Magnetic resonance imaging head abnormal [Recovered/Resolved]
  - Myoclonic epilepsy [Recovered/Resolved]
  - Condition aggravated [Recovered/Resolved]
  - Pneumonia aspiration [Recovering/Resolving]

NARRATIVE: CASE EVENT DATE: 20210612
